FAERS Safety Report 8726848 (Version 2)
Quarter: 2015Q2

REPORT INFORMATION
  Report Type: Report from Study
  Country: US (occurrence: US)
  Receive Date: 20120816
  Receipt Date: 20150624
  Transmission Date: 20150821
  Serious: No
  Sender: FDA-Public Use
  Company Number: US-ROCHE-1099776

PATIENT
  Age: 60 Year
  Sex: Male

DRUGS (7)
  1. TENORMIN [Concomitant]
     Active Substance: ATENOLOL
     Route: 065
  2. ECOTRIN [Concomitant]
     Active Substance: ASPIRIN
     Route: 065
  3. NITROGLYCERIN. [Concomitant]
     Active Substance: NITROGLYCERIN
     Route: 042
  4. ASPIRIN. [Concomitant]
     Active Substance: ASPIRIN
  5. LIDOCAINE. [Concomitant]
     Active Substance: LIDOCAINE
     Route: 042
  6. ACTIVASE [Suspect]
     Active Substance: ALTEPLASE
     Indication: MYOCARDIAL INFARCTION
     Route: 042
  7. HEPARIN [Concomitant]
     Active Substance: HEPARIN SODIUM
     Route: 042

REACTIONS (2)
  - Vascular headache [Recovered/Resolved]
  - Ventricular hypokinesia [Unknown]
